FAERS Safety Report 18017090 (Version 1)
Quarter: 2020Q3

REPORT INFORMATION
  Report Type: Spontaneous
  Country: FR (occurrence: FR)
  Receive Date: 20200714
  Receipt Date: 20200714
  Transmission Date: 20201103
  Serious: Yes (Hospitalization)
  Sender: FDA-Public Use
  Company Number: FR-ACCORD-189389

PATIENT
  Age: 65 Year
  Sex: Male

DRUGS (6)
  1. CLOZAPINE. [Suspect]
     Active Substance: CLOZAPINE
     Indication: PARKINSON^S DISEASE PSYCHOSIS
     Dosage: 25 MG 0.25 TABLETS AT 8H, 0.5 TABLETS AT 18H
     Route: 048
  2. LEVODOPA [Suspect]
     Active Substance: LEVODOPA
     Indication: PARKINSON^S DISEASE
     Dosage: 2 TABLETS AT 8H, 2 TABLETS AT 10H, 1 TABLET AT 12H, 1 TABLET AT 16H, 1 TABLET AT?19H
     Route: 048
  3. VERAPAMIL [Suspect]
     Active Substance: VERAPAMIL HYDROCHLORIDE
     Indication: HYPERTENSION
     Route: 048
  4. SPIRONOLACTONE. [Suspect]
     Active Substance: SPIRONOLACTONE
     Indication: CARDIAC FAILURE
     Route: 048
  5. ALFUZOSIN [Suspect]
     Active Substance: ALFUZOSIN
     Indication: BENIGN PROSTATIC HYPERPLASIA
     Route: 048
  6. CARBIDOPA. [Suspect]
     Active Substance: CARBIDOPA
     Indication: PARKINSON^S DISEASE
     Dosage: 100 / 10 MG: 2 TABLETS AT 8H, 2 TABLETS AT 10H, 1 TABLET AT 12H, 1 TABLET AT 16H,?1 TABLET AT 19H.
     Route: 048

REACTIONS (2)
  - Orthostatic hypotension [Not Recovered/Not Resolved]
  - Fall [Unknown]

NARRATIVE: CASE EVENT DATE: 20190719
